FAERS Safety Report 11273871 (Version 1)
Quarter: 2015Q3

REPORT INFORMATION
  Report Type: Report from Study
  Country: ET (occurrence: ET)
  Receive Date: 20150715
  Receipt Date: 20150715
  Transmission Date: 20151125
  Serious: Yes (Other)
  Sender: FDA-Public Use
  Company Number: ET-B.I. PHARMACEUTICALS,INC./RIDGEFIELD-2015-BI-37854BI

PATIENT
  Age: 6 Month

DRUGS (5)
  1. LAMIVUDINE. [Suspect]
     Active Substance: LAMIVUDINE
     Indication: PROPHYLAXIS AGAINST HIV INFECTION
     Route: 064
  2. VIRAMUNE [Suspect]
     Active Substance: NEVIRAPINE
     Dosage: 200 MG
     Route: 064
  3. LAMIVUDINE. [Suspect]
     Active Substance: LAMIVUDINE
     Dosage: 150 MG
     Route: 063
  4. VIRAMUNE [Suspect]
     Active Substance: NEVIRAPINE
     Indication: PROPHYLAXIS AGAINST HIV INFECTION
     Dosage: 2 RT
     Route: 065
  5. VIRAMUNE [Suspect]
     Active Substance: NEVIRAPINE
     Route: 064

REACTIONS (1)
  - HIV infection [Unknown]
